FAERS Safety Report 10100033 (Version 6)
Quarter: 2014Q3

REPORT INFORMATION
  Report Type: Spontaneous
  Country: US (occurrence: US)
  Receive Date: 20140423
  Receipt Date: 20140714
  Transmission Date: 20150326
  Serious: Yes (Hospitalization, Disabling, Other)
  Sender: FDA-Public Use
  Company Number: US-009507513-1205USA02101

PATIENT
  Sex: Female
  Weight: 74.6 kg

DRUGS (3)
  1. ALENDRONATE SODIUM. [Suspect]
     Active Substance: ALENDRONATE SODIUM
     Indication: OSTEOPOROSIS
     Dosage: 70 MG, UNK
     Route: 048
     Dates: start: 1998, end: 2010
  2. FOSAMAX [Suspect]
     Active Substance: ALENDRONATE SODIUM
     Indication: OSTEOPOROSIS
     Dosage: 70 MG, QW
     Route: 048
     Dates: start: 20020221
  3. FOSAMAX [Suspect]
     Active Substance: ALENDRONATE SODIUM
     Indication: OSTEOPOROSIS POSTMENOPAUSAL
     Dosage: 10 MG, QD
     Route: 048
     Dates: start: 19991122

REACTIONS (22)
  - Removal of internal fixation [Unknown]
  - Femur fracture [Recovered/Resolved]
  - Adverse event [Unknown]
  - Cataract operation [Unknown]
  - Tooth extraction [Unknown]
  - Ligament sprain [Unknown]
  - Urinary tract infection [Unknown]
  - Intramedullary rod insertion [Recovered/Resolved]
  - Dental implantation [Unknown]
  - Femur fracture [Recovering/Resolving]
  - Device failure [Unknown]
  - Intramedullary rod insertion [Recovering/Resolving]
  - Postoperative ileus [Recovered/Resolved]
  - Periodontal operation [Unknown]
  - Road traffic accident [Unknown]
  - Haemorrhoids [Unknown]
  - Rib fracture [Unknown]
  - Vitamin D deficiency [Unknown]
  - Scoliosis [Unknown]
  - Varicose vein [Unknown]
  - Osteoarthritis [Unknown]
  - Hypertension [Unknown]

NARRATIVE: CASE EVENT DATE: 2000
